FAERS Safety Report 10788675 (Version 2)
Quarter: 2015Q1

REPORT INFORMATION
  Report Type: Spontaneous
  Country: US (occurrence: US)
  Receive Date: 20150212
  Receipt Date: 20150213
  Transmission Date: 20150721
  Serious: Yes (Life-Threatening, Hospitalization, Other)
  Sender: FDA-Public Use
  Company Number: US-SA-2015SA014904

PATIENT
  Age: 65 Year
  Sex: Female

DRUGS (4)
  1. LANTUS SOLOSTAR [Suspect]
     Active Substance: INSULIN GLARGINE
     Indication: TYPE 2 DIABETES MELLITUS
     Dosage: DOSE:44 UNIT(S)
     Route: 065
     Dates: start: 2007
  2. LANTUS SOLOSTAR [Suspect]
     Active Substance: INSULIN GLARGINE
     Indication: TYPE 2 DIABETES MELLITUS
     Dosage: DOSE:44 UNIT(S)
     Route: 065
  3. SOLOSTAR [Concomitant]
     Active Substance: DEVICE
     Indication: DEVICE THERAPY
     Dates: start: 2007
  4. SOLOSTAR [Concomitant]
     Active Substance: DEVICE
     Indication: DEVICE THERAPY

REACTIONS (25)
  - Abdominal pain [Unknown]
  - Respiratory arrest [Unknown]
  - Pulmonary function test abnormal [Unknown]
  - Pyrexia [Unknown]
  - Periorbital oedema [Unknown]
  - Fluid retention [Unknown]
  - Confusional state [Unknown]
  - Inappropriate schedule of drug administration [Unknown]
  - Malaise [Unknown]
  - Erythema [Unknown]
  - Vomiting [Unknown]
  - Unresponsive to stimuli [Unknown]
  - Dyspnoea [Unknown]
  - Incision site complication [Unknown]
  - Swelling [Unknown]
  - Blood disorder [Unknown]
  - Disorientation [Recovered/Resolved]
  - Pain [Unknown]
  - Urinary tract infection [Unknown]
  - Gait disturbance [Recovering/Resolving]
  - Visual acuity reduced [Unknown]
  - Cellulitis [Unknown]
  - Fungal infection [Unknown]
  - Insomnia [Unknown]
  - Blood glucose decreased [Unknown]

NARRATIVE: CASE EVENT DATE: 2013
